FAERS Safety Report 5998026-X (Version None)
Quarter: 2008Q4

REPORT INFORMATION
  Report Type: 
  Country: None (occurrence: None)
  Receive Date: 20081213
  Receipt Date: 20081203
  Transmission Date: 20090506
  Serious: Yes (Other)
  Sender: FDA-Public Use
  Company Number: US-GENENTECH-273303

PATIENT

DRUGS (2)
  1. BEVACIZUMAB [Suspect]
     Indication: METASTATIC RENAL CELL CARCINOMA
     Dosage: 15 MG/KG, Q21D
     Route: 042
     Dates: start: 20070807
  2. VORINOSTAT [Concomitant]
     Indication: METASTATIC RENAL CELL CARCINOMA
     Dosage: 200 MG, BID/D1-14/Q3W
     Route: 048
     Dates: start: 20070807

REACTIONS (1)
  - HAEMOGLOBIN DECREASED [None]
